FAERS Safety Report 6635021-1 (Version None)
Quarter: 2010Q1

REPORT INFORMATION
  Report Type: 
  Country: None (occurrence: None)
  Receive Date: 20100311
  Receipt Date: 20100311
  Transmission Date: 20100710
  Serious: Yes (Life-Threatening)
  Sender: FDA-Public Use
  Company Number: None

PATIENT
  Age: 56 Year
  Sex: Female
  Weight: 70.7611 kg

DRUGS (2)
  1. FENTANYL-100 [Suspect]
     Indication: PAIN
     Dosage: 100 MCG PATCH QOD TRANSDERMAL
     Route: 062
     Dates: start: 20100208, end: 20100310
  2. FENTANYL-100 [Suspect]
     Indication: RESTLESS LEGS SYNDROME
     Dosage: 100 MCG PATCH QOD TRANSDERMAL
     Route: 062
     Dates: start: 20100208, end: 20100310

REACTIONS (3)
  - DRUG INEFFECTIVE [None]
  - PRODUCT SUBSTITUTION ISSUE [None]
  - RESTLESS LEGS SYNDROME [None]
